FAERS Safety Report 8841752 (Version 1)
Quarter: 2012Q4

REPORT INFORMATION
  Report Type: 
  Country: US (occurrence: US)
  Receive Date: 20121016
  Receipt Date: 20121016
  Transmission Date: 20130627
  Serious: Yes (Other)
  Sender: FDA-Public Use
  Company Number: US-ELI_LILLY_AND_COMPANY-US201210003749

PATIENT
  Sex: Male
  Weight: 109 kg

DRUGS (13)
  1. EFFIENT [Suspect]
     Indication: STENT PLACEMENT
     Dosage: 10 mg, UNK
  2. ACIPHEX [Concomitant]
     Dosage: 20 mg, bid
  3. VALIUM [Concomitant]
     Dosage: 5 mg, bid
  4. NEURONTIN [Concomitant]
     Dosage: 600 mg, qid
  5. ALBUTEROL [Concomitant]
     Dosage: UNK
  6. PULMICORT [Concomitant]
  7. ASPIRIN [Concomitant]
     Dosage: 162 mg, bid
  8. SALMON OIL [Concomitant]
     Dosage: 1000 mg, UNK
  9. NITROGLYCERIN [Concomitant]
     Dosage: 0.4 mg, UNK
     Route: 061
  10. BUMEX [Concomitant]
     Dosage: 2 mg, qd
  11. KLOR-CON M20 [Concomitant]
     Dosage: 100 mEq, qd
  12. NORCO [Concomitant]
  13. FENTANYL [Concomitant]
     Route: 062

REACTIONS (4)
  - Stent placement [Unknown]
  - Intervertebral disc disorder [Not Recovered/Not Resolved]
  - Drug dispensing error [Unknown]
  - Back pain [Not Recovered/Not Resolved]
